FAERS Safety Report 10023160 (Version 1)
Quarter: 2014Q1

REPORT INFORMATION
  Report Type: Report from Study
  Country: US (occurrence: US)
  Receive Date: 20140320
  Receipt Date: 20140320
  Transmission Date: 20141002
  Serious: Yes (Other)
  Sender: FDA-Public Use
  Company Number: US-ROCHE-1363670

PATIENT
  Age: 9 Year
  Sex: Male
  Weight: 26.79 kg

DRUGS (2)
  1. NUTROPIN AQ [Suspect]
     Indication: SILVER-RUSSELL SYNDROME
     Route: 058
  2. ALBUTEROL [Concomitant]

REACTIONS (4)
  - Growth retardation [Unknown]
  - Insulin-like growth factor increased [Unknown]
  - Vitamin D deficiency [Unknown]
  - Male genital examination abnormal [Unknown]
